FAERS Safety Report 7039736-5 (Version None)
Quarter: 2010Q4

REPORT INFORMATION
  Report Type: 
  Country: None (occurrence: None)
  Receive Date: 20101012
  Receipt Date: 20101004
  Transmission Date: 20110411
  Serious: No
  Sender: FDA-Public Use
  Company Number: US-B.I. PHARMACEUTICALS,INC./RIDGEFIELD-2010-BP-11261BP

PATIENT
  Sex: Female

DRUGS (5)
  1. SPIRIVA [Suspect]
     Indication: CHRONIC OBSTRUCTIVE PULMONARY DISEASE
     Dosage: 18 MCG
     Route: 055
     Dates: start: 20070101
  2. DARVOCET [Concomitant]
     Indication: ARTHRALGIA
     Route: 048
  3. ZOLPIDEM [Concomitant]
     Indication: INSOMNIA
     Dosage: 10 MG
     Route: 048
  4. LORAZEPAM [Concomitant]
     Indication: INSOMNIA
     Dosage: 0.5 MG
     Route: 048
  5. PROTONIX [Concomitant]
     Indication: REFLUX LARYNGITIS
     Dosage: 40 MG
     Route: 048

REACTIONS (2)
  - DYSPHONIA [None]
  - HYPERTENSION [None]
